FAERS Safety Report 7416429-3 (Version None)
Quarter: 2011Q2

REPORT INFORMATION
  Report Type: 
  Country: None (occurrence: None)
  Receive Date: 20110414
  Receipt Date: 20110318
  Transmission Date: 20111010
  Serious: No
  Sender: FDA-Public Use
  Company Number: US-B.I. PHARMACEUTICALS,INC./RIDGEFIELD-2011-BP-08719BP

PATIENT
  Sex: Female

DRUGS (6)
  1. VITAMIN D [Concomitant]
     Indication: VITAMIN D DECREASED
  2. PRADAXA [Suspect]
     Indication: ATRIAL FIBRILLATION
     Dosage: 150 MG
     Route: 048
     Dates: start: 20110206
  3. LISINOPRIL [Concomitant]
     Indication: HYPERTENSION
  4. DILTIAZEM [Suspect]
  5. DIGOXIN [Suspect]
  6. ZOLOFT [Concomitant]
     Indication: ANXIETY
     Dates: start: 20110317

REACTIONS (1)
  - TARDIVE DYSKINESIA [None]
